FAERS Safety Report 5511716-8 (Version None)
Quarter: 2007Q4

REPORT INFORMATION
  Report Type: 
  Country: None (occurrence: None)
  Receive Date: 20071109
  Receipt Date: 20071029
  Transmission Date: 20080405
  Serious: Yes (Other)
  Sender: FDA-Public Use
  Company Number: US-PFIZER INC-2007091036

PATIENT
  Age: 23 Year
  Sex: Male

DRUGS (1)
  1. LYRICA [Suspect]
     Indication: MIGRAINE
     Dosage: DAILY DOSE:3600MG

REACTIONS (1)
  - DRUG ABUSE [None]
